FAERS Safety Report 7729154-6 (Version None)
Quarter: 2011Q3

REPORT INFORMATION
  Report Type: 
  Country: None (occurrence: None)
  Receive Date: 20110906
  Receipt Date: 20110831
  Transmission Date: 20111222
  Serious: No
  Sender: FDA-Public Use
  Company Number: US-PFIZER INC-2011203151

PATIENT
  Sex: Female

DRUGS (2)
  1. LYRICA [Suspect]
     Dosage: UNK
     Dates: start: 20110101
  2. BIMATOPROST [Interacting]
     Indication: GROWTH OF EYELASHES
     Dosage: UNK
     Dates: start: 20100101, end: 20110817

REACTIONS (3)
  - MADAROSIS [None]
  - ALOPECIA [None]
  - DRUG INTERACTION [None]
